FAERS Safety Report 9208816 (Version 1)
Quarter: 2013Q2

REPORT INFORMATION
  Report Type: Spontaneous
  Country: US (occurrence: US)
  Receive Date: 20130404
  Receipt Date: 20130404
  Transmission Date: 20140414
  Serious: No
  Sender: FDA-Public Use
  Company Number: US-PFIZER INC-2013105277

PATIENT
  Age: 78 Year
  Sex: Male

DRUGS (9)
  1. SUTENT [Suspect]
     Indication: RENAL CANCER
     Dosage: 50 MG, UNK
     Dates: start: 20130306
  2. AMLODIPINE BESILATE [Concomitant]
     Dosage: UNK
  3. TAMSULOSIN HYDROCHLORIDE [Concomitant]
     Dosage: UNK
  4. AVODART [Concomitant]
     Dosage: UNK
  5. TYLENOL ARTHRITIS PAIN [Concomitant]
     Dosage: UNK
  6. BENADRYL ALLERGY [Concomitant]
     Dosage: UNK
  7. CALCIUM 600+D3 [Concomitant]
     Dosage: UNK
  8. DONEPEZIL HYDROCHLORIDE [Concomitant]
     Dosage: UNK
  9. LEVOFLOXACIN [Concomitant]
     Dosage: UNK

REACTIONS (2)
  - Disease progression [Unknown]
  - Renal cancer [Unknown]
